FAERS Safety Report 23553578 (Version 1)
Quarter: 2024Q1

REPORT INFORMATION
  Report Type: Report from Study
  Country: CA (occurrence: CA)
  Receive Date: 20240222
  Receipt Date: 20240222
  Transmission Date: 20240410
  Serious: Yes (Death)
  Sender: FDA-Public Use
  Company Number: None

PATIENT
  Age: 61 Year
  Sex: Male

DRUGS (2)
  1. AZACITIDINE [Suspect]
     Active Substance: AZACITIDINE
     Indication: Acute myeloid leukaemia
     Dosage: 75MG/M2 FOR 7 DAYS EVERY 28 DAYS, POWDER FOR SUSPENSION SUBCUTANEOUS
     Route: 058
  2. AZACITIDINE [Suspect]
     Active Substance: AZACITIDINE

REACTIONS (1)
  - Death [Fatal]
